FAERS Safety Report 10498091 (Version 2)
Quarter: 2014Q4

REPORT INFORMATION
  Report Type: Spontaneous
  Country: US (occurrence: None)
  Receive Date: 20141002
  Receipt Date: 20141211
  Transmission Date: 20150528
  Serious: Yes (Death, Life-Threatening, Hospitalization)
  Sender: FDA-Public Use
  Company Number: 2014SGN01150

PATIENT
  Age: 70 Year
  Sex: Male
  Weight: 71.3 kg

DRUGS (13)
  1. VINCRISTINE (VINCRISTINE) INJECTION [Suspect]
     Active Substance: VINCRISTINE
     Indication: DIFFUSE LARGE B-CELL LYMPHOMA
     Dosage: 1.4 MG/KG, Q21D, INTRAVENOUS
     Route: 042
     Dates: start: 20140903, end: 20140903
  2. DOXORUBICIN (DOXORUBICIN) INJECTION [Suspect]
     Active Substance: DOXORUBICIN
     Indication: DIFFUSE LARGE B-CELL LYMPHOMA
     Dosage: 50 MG/KG, Q21D, INTRAVENOUS
     Route: 042
     Dates: start: 20140903, end: 20140903
  3. RITUXIMAB (RITUXIMAB) INJECTION [Suspect]
     Active Substance: RITUXIMAB
     Indication: DIFFUSE LARGE B-CELL LYMPHOMA
     Dosage: 375 MG/KG, Q21D, INTRAVENOUS
     Route: 042
     Dates: start: 20140903, end: 20140903
  4. LORAZEPAM (LORAZEPAM) [Concomitant]
     Active Substance: LORAZEPAM
  5. CYCLOPHOSPAMIDE [Suspect]
     Active Substance: CYCLOPHOSPHAMIDE
     Indication: DIFFUSE LARGE B-CELL LYMPHOMA
     Dosage: 750 MG/KG, Q21D, INTRAVENOUS?
     Route: 042
     Dates: start: 20140903, end: 20140903
  6. ASPIRIN (ACETYLSALICYLIC ACID) [Concomitant]
     Active Substance: ASPIRIN
  7. ONDANSETRON. [Concomitant]
     Active Substance: ONDANSETRON
  8. BRENTUXIMAB VEDOTIN (BRENTUXIMAB VEDOTIN) INJECTION [Suspect]
     Active Substance: BRENTUXIMAB VEDOTIN
     Indication: DIFFUSE LARGE B-CELL LYMPHOMA
     Dosage: 1.2 MG/KG, Q21D, INTRAVENOUS
     Route: 042
     Dates: start: 20140903, end: 20140903
  9. NEULASTA [Concomitant]
     Active Substance: PEGFILGRASTIM
  10. PREDNISONE (PREDNISONE) ORAL [Suspect]
     Active Substance: PREDNISONE
     Indication: DIFFUSE LARGE B-CELL LYMPHOMA
     Dosage: 500 MG, QCYCLE, ORAL
     Route: 048
     Dates: start: 20140903, end: 20140903
  11. PROCHLORPERAZINE MALEATE (PROCHLORPERAZINE MALEATE) [Concomitant]
     Active Substance: PROCHLORPERAZINE MALEATE
  12. SULFAMETHOXAZOLE AND TRIMETHOPRIM (SULFAMETHOXAZOLE, TRIMETHOPRIM) [Concomitant]
  13. GLYBURIDE (GLYBURIDE) [Concomitant]

REACTIONS (9)
  - Acute lung injury [None]
  - Gastrointestinal haemorrhage [None]
  - Dialysis [None]
  - Neutropenia [None]
  - Acute kidney injury [None]
  - Thrombocytopenia [None]
  - Duodenal ulcer [None]
  - Hypovolaemic shock [None]
  - Acute respiratory failure [None]

NARRATIVE: CASE EVENT DATE: 20140905
